FAERS Safety Report 8835828 (Version 1)
Quarter: 2012Q4

REPORT INFORMATION
  Report Type: 
  Country: PL (occurrence: PL)
  Receive Date: 20121011
  Receipt Date: 20121011
  Transmission Date: 20130627
  Serious: Yes (Other)
  Sender: FDA-Public Use
  Company Number: PL-GLAXOSMITHKLINE-B0836269A

PATIENT
  Age: 22 Year
  Sex: Female

DRUGS (2)
  1. TROBALT [Suspect]
     Indication: PRODUCT USED FOR UNKNOWN INDICATION
     Route: 048
  2. AMOXICILLIN [Concomitant]
     Indication: PYREXIA
     Route: 065

REACTIONS (2)
  - Myoclonic epilepsy [Unknown]
  - Tremor [Unknown]
